FAERS Safety Report 9478030 (Version 1)
Quarter: 2013Q3

REPORT INFORMATION
  Report Type: Spontaneous
  Country: FR (occurrence: FR)
  Receive Date: 20130827
  Receipt Date: 20130827
  Transmission Date: 20140515
  Serious: Yes (Death)
  Sender: FDA-Public Use
  Company Number: PHHY2013FR091878

PATIENT
  Sex: Male

DRUGS (1)
  1. TASIGNA [Suspect]
     Route: 048

REACTIONS (1)
  - Cardiac disorder [Fatal]
